FAERS Safety Report 24186390 (Version 4)
Quarter: 2025Q4

REPORT INFORMATION
  Report Type: Report from Study
  Country: CA (occurrence: CA)
  Receive Date: 20240808
  Receipt Date: 20251010
  Transmission Date: 20260118
  Serious: Yes (Death, Hospitalization, Other)
  Sender: CELLTRION
  Company Number: CA-CELLTRION INC.-2023CA003691

PATIENT

DRUGS (19)
  1. ADALIMUMAB-AATY [Suspect]
     Active Substance: ADALIMUMAB-AATY
     Indication: Rheumatoid arthritis
     Dosage: YUFLYMA 40MG / 0.4ML AI AUTOINJECTOR
     Route: 058
     Dates: start: 20230109
  2. ADALIMUMAB-AATY [Suspect]
     Active Substance: ADALIMUMAB-AATY
     Dosage: HAD CHEMO ON 3FEB2023, THEN YUFLYMA INJECTION 4FEB
     Route: 058
     Dates: start: 20230204
  3. ADALIMUMAB-AATY [Suspect]
     Active Substance: ADALIMUMAB-AATY
     Dosage: 40 MG, Q2WEEKS/40 MG EVERY 14 DAYS (MAINTENANCE)
     Route: 058
     Dates: start: 20230107, end: 2025
  4. ADALIMUMAB-AATY [Suspect]
     Active Substance: ADALIMUMAB-AATY
     Dosage: 40 MG EVERY 14 DAYS (MAINTENANCE)
     Route: 058
     Dates: start: 202407
  5. DOXORUBICIN HYDROCHLORIDE [Concomitant]
     Active Substance: DOXORUBICIN HYDROCHLORIDE
     Indication: Chemotherapy
     Dosage: CAELYX (CHEMO) MONTHLY 4 TREATMENT TOTAL 2 DONE NEXT ONE DUE 4 JAN
     Dates: start: 202210
  6. DOXORUBICIN HYDROCHLORIDE [Concomitant]
     Active Substance: DOXORUBICIN HYDROCHLORIDE
     Dosage: ALSO MENTIONS SHE HAD CHEMO ON 3FEB2023, THEN YUFLYMA INJECTION 4FEB, SO MAYBE THAT HAS SOMETHING TO
     Dates: start: 20230203
  7. METHOTREXATE SODIUM [Concomitant]
     Active Substance: METHOTREXATE SODIUM
     Dosage: 20MG OD OR 25MG SC WEEKLY: CURRENT 20MG WEEKLY (MAR-2020 TO PRESENT)
     Dates: start: 202003
  8. METHOTREXATE SODIUM [Concomitant]
     Active Substance: METHOTREXATE SODIUM
     Dosage: ONCE WEEKLY 50 MG
  9. SYNTHROID [Concomitant]
     Active Substance: LEVOTHYROXINE SODIUM
     Dosage: 88MCG DAILY
  10. PANTOPRAZOLE [Concomitant]
     Active Substance: PANTOPRAZOLE
     Dosage: PANTOPRAZOLE 40MG DAILY
  11. FOLIC ACID [Concomitant]
     Active Substance: FOLIC ACID
     Dosage: 1MG DAILY EXCEPT ON DAY OF MTX
  12. VITAMIN D3 [Concomitant]
     Active Substance: CHOLECALCIFEROL
     Dosage: 1000 UNITS
  13. VITAMIN B12 [Concomitant]
     Active Substance: CYANOCOBALAMIN
     Dosage: 1200MCG DAILY
  14. PROCHLORAZINE [Concomitant]
     Indication: Nausea
     Dosage: PROCHLORAZINE FOR NAUSEA WHEN ON CAELYX FOR A FEW DAYS AFTER CHEMO
  15. DOXORUBICIN HYDROCHLORIDE [Concomitant]
     Active Substance: DOXORUBICIN HYDROCHLORIDE
     Indication: Chemotherapy
     Dosage: 1 EVERY 1 MONTHS
  16. DOXORUBICIN HYDROCHLORIDE [Concomitant]
     Active Substance: DOXORUBICIN HYDROCHLORIDE
     Dosage: UNK
  17. METHOTREXATE [Concomitant]
     Active Substance: METHOTREXATE
     Dosage: 50 MG, 1 EVERY 1 WEEKS
  18. METHOTREXATE [Concomitant]
     Active Substance: METHOTREXATE
     Dosage: 20 MG, 1 EVERY 1 WEEKS
  19. PREDNISONE [Concomitant]
     Active Substance: PREDNISONE
     Dosage: 20 MG NOW 7.5MG STILL HAS SWOLLEN JOINTS

REACTIONS (3)
  - Death [Fatal]
  - Fatigue [Fatal]
  - Neoplasm malignant [Fatal]
